FAERS Safety Report 6504314-0 (Version None)
Quarter: 2009Q4

REPORT INFORMATION
  Report Type: 
  Country: None (occurrence: None)
  Receive Date: 20091217
  Receipt Date: 20091208
  Transmission Date: 20100525
  Serious: Yes (Hospitalization)
  Sender: FDA-Public Use
  Company Number: US-BAXTER-2009BH018636

PATIENT
  Sex: Female

DRUGS (4)
  1. DIANEAL [Suspect]
     Indication: PERITONEAL DIALYSIS
     Route: 033
     Dates: start: 20080101, end: 20091118
  2. DIANEAL [Suspect]
     Route: 033
     Dates: start: 20091118
  3. DIANEAL [Suspect]
     Indication: PERITONEAL DIALYSIS
     Route: 033
     Dates: start: 20080101
  4. DIANEAL [Suspect]
     Indication: PERITONEAL DIALYSIS
     Route: 033
     Dates: start: 20080101

REACTIONS (7)
  - AMNESIA [None]
  - ANXIETY [None]
  - BACK PAIN [None]
  - DECREASED APPETITE [None]
  - DEPRESSION [None]
  - FAILURE TO THRIVE [None]
  - MENTAL STATUS CHANGES [None]
